FAERS Safety Report 14484741 (Version 1)
Quarter: 2018Q1

REPORT INFORMATION
  Report Type: Other
  Country: DE (occurrence: DE)
  Receive Date: 20180205
  Receipt Date: 20180205
  Transmission Date: 20180509
  Serious: Yes (Other)
  Sender: FDA-Public Use
  Company Number: DE-GLENMARK PHARMACEUTICALS-2017GMK031080

PATIENT

DRUGS (10)
  1. ARIPIPRAZOL GLENMARK 10MG TABLETTEN [Suspect]
     Active Substance: ARIPIPRAZOLE
     Indication: NERVOUS SYSTEM DISORDER
     Dosage: 15 MG, UNK
     Route: 065
     Dates: start: 2016, end: 2016
  2. QUETIAPINE FUMARATE. [Suspect]
     Active Substance: QUETIAPINE FUMARATE
     Indication: NERVOUS SYSTEM DISORDER
     Dosage: 200 MG, UNK
     Route: 065
     Dates: start: 2016, end: 2016
  3. RISPERIDONE. [Suspect]
     Active Substance: RISPERIDONE
     Indication: NERVOUS SYSTEM DISORDER
     Dosage: 4 MG, UNK
     Route: 065
     Dates: start: 2016, end: 2016
  4. METHYLPREDNISOLONE. [Suspect]
     Active Substance: METHYLPREDNISOLONE
     Indication: HASHIMOTO^S ENCEPHALOPATHY
     Dosage: 5 MG ? 500 MG FOR FIVE CONSECUTIVE DAYS ()
     Route: 065
     Dates: start: 2016, end: 201609
  5. CITALOPRAM HYDROBROMIDE. [Suspect]
     Active Substance: CITALOPRAM HYDROBROMIDE
     Indication: PRODUCT USED FOR UNKNOWN INDICATION
     Dosage: 20 MG, UNK
     Route: 065
     Dates: start: 2016, end: 2016
  6. AMISULPRIDE [Suspect]
     Active Substance: AMISULPRIDE
     Indication: NERVOUS SYSTEM DISORDER
     Dosage: UP TO 400 MG/DAY
     Route: 065
     Dates: start: 2016, end: 2016
  7. METHYLPREDNISOLONE. [Suspect]
     Active Substance: METHYLPREDNISOLONE
     Indication: AUTOIMMUNE THYROIDITIS
     Dosage: 5 MG ? 500 MG FOR FIVE CONSECUTIVE DAYS ()
     Route: 065
     Dates: start: 2016, end: 201609
  8. LORAZEPAM. [Suspect]
     Active Substance: LORAZEPAM
     Indication: ANXIETY
     Dosage: 5 MG, UNK
     Route: 065
     Dates: start: 2016, end: 2016
  9. FLUPENTIXOL [Suspect]
     Active Substance: FLUPENTIXOL
     Indication: NERVOUS SYSTEM DISORDER
     Dosage: 1.5 MG, UNK
     Route: 065
     Dates: start: 2016, end: 2016
  10. VENLAFAXINE [Suspect]
     Active Substance: VENLAFAXINE HYDROCHLORIDE
     Indication: DEPRESSION
     Dosage: 150 MG, UNK
     Route: 065
     Dates: start: 2016, end: 2016

REACTIONS (3)
  - Drug ineffective [Unknown]
  - Cognitive disorder [Recovering/Resolving]
  - Condition aggravated [Recovering/Resolving]

NARRATIVE: CASE EVENT DATE: 2016
